FAERS Safety Report 15251311 (Version 3)
Quarter: 2020Q3

REPORT INFORMATION
  Report Type: Spontaneous
  Country: US (occurrence: US)
  Receive Date: 20180807
  Receipt Date: 20200908
  Transmission Date: 20201102
  Serious: Yes (Hospitalization, Other)
  Sender: FDA-Public Use
  Company Number: US-ASTRAZENECA-2018SE97727

PATIENT
  Age: 562 Month
  Sex: Female
  Weight: 86.2 kg

DRUGS (82)
  1. NEXIUM [Suspect]
     Active Substance: ESOMEPRAZOLE MAGNESIUM
     Indication: GASTROOESOPHAGEAL REFLUX DISEASE
     Route: 048
  2. CETALEXIN [Concomitant]
     Indication: KIDNEY INFECTION
  3. CETUROXIME [Concomitant]
     Indication: KIDNEY INFECTION
  4. TYLENOL [Concomitant]
     Active Substance: ACETAMINOPHEN
     Indication: PAIN
  5. ALEVE [Concomitant]
     Active Substance: NAPROXEN SODIUM
     Indication: PAIN
  6. PYRIDIUM [Concomitant]
     Active Substance: PHENAZOPYRIDINE
     Indication: RENAL PAIN
     Dates: start: 2010, end: 2016
  7. PROPRANOLOL HCL [Concomitant]
     Active Substance: PROPRANOLOL HYDROCHLORIDE
     Route: 048
  8. CLONIDINE. [Concomitant]
     Active Substance: CLONIDINE
  9. BENADRYL [Concomitant]
     Active Substance: DIPHENHYDRAMINE HYDROCHLORIDE
     Route: 048
  10. CALCIUM [Concomitant]
     Active Substance: CALCIUM
  11. VENLAFAXINE [Concomitant]
     Active Substance: VENLAFAXINE HYDROCHLORIDE
  12. PROTONIX [Suspect]
     Active Substance: PANTOPRAZOLE SODIUM
     Route: 065
  13. SEROQUEL [Concomitant]
     Active Substance: QUETIAPINE FUMARATE
     Indication: SLEEP DISORDER
     Dates: start: 2012, end: 2017
  14. ZANTAC [Concomitant]
     Active Substance: RANITIDINE HYDROCHLORIDE
     Indication: GASTROOESOPHAGEAL REFLUX DISEASE
     Dates: start: 2018
  15. TIZANIDINE. [Concomitant]
     Active Substance: TIZANIDINE
     Dates: start: 2016
  16. PRILOSEC [Concomitant]
     Active Substance: OMEPRAZOLE MAGNESIUM
     Indication: GASTROOESOPHAGEAL REFLUX DISEASE
     Route: 048
     Dates: start: 2018
  17. CETACLOR [Concomitant]
     Indication: KIDNEY INFECTION
  18. HYDRALAZINE [Concomitant]
     Active Substance: HYDRALAZINE HYDROCHLORIDE
     Indication: HYPERTENSION
  19. NOREPINEPHRINE. [Concomitant]
     Active Substance: NOREPINEPHRINE
  20. PEPCID AC [Concomitant]
     Active Substance: FAMOTIDINE
  21. ROLAIDS [Concomitant]
     Active Substance: CALCIUM CARBONATE\MAGNESIUM HYDROXIDE
  22. TEMAZEPAM. [Concomitant]
     Active Substance: TEMAZEPAM
     Dates: start: 20130212
  23. COUMADIN [Concomitant]
     Active Substance: WARFARIN SODIUM
     Route: 048
     Dates: start: 20070408
  24. SULFAMETHOXAZOLE [Concomitant]
     Active Substance: SULFAMETHOXAZOLE
  25. NORVASC [Concomitant]
     Active Substance: AMLODIPINE BESYLATE
  26. ZANAFLEX [Concomitant]
     Active Substance: TIZANIDINE HYDROCHLORIDE
  27. OMEPRAZOLE. [Suspect]
     Active Substance: OMEPRAZOLE
     Indication: GASTROOESOPHAGEAL REFLUX DISEASE
     Dosage: GENERIC40.0MG UNKNOWN
     Route: 065
     Dates: start: 2009, end: 2010
  28. PROTONIX [Suspect]
     Active Substance: PANTOPRAZOLE SODIUM
     Dosage: 40 MG
     Route: 065
     Dates: start: 20060507
  29. OXYCODONE [Concomitant]
     Active Substance: OXYCODONE
     Indication: PAIN
     Dates: start: 2011, end: 2017
  30. TRIMETHOPRIM/SULFAMETHOXAZOLE [Concomitant]
     Active Substance: SULFAMETHOXAZOLE\TRIMETHOPRIM
     Indication: KIDNEY INFECTION
  31. VITAMIN D [Concomitant]
     Active Substance: VITAMIN D NOS
  32. CHLORTHALIDONE. [Concomitant]
     Active Substance: CHLORTHALIDONE
     Route: 048
     Dates: start: 20170130
  33. TRAZODONE [Concomitant]
     Active Substance: TRAZODONE HYDROCHLORIDE
     Route: 048
  34. FERROUS GLUCONATE [Concomitant]
     Active Substance: FERROUS GLUCONATE
  35. NEXIUM [Suspect]
     Active Substance: ESOMEPRAZOLE MAGNESIUM
     Indication: GASTROOESOPHAGEAL REFLUX DISEASE
     Route: 048
     Dates: start: 20040413, end: 20041102
  36. OMEPRAZOLE. [Suspect]
     Active Substance: OMEPRAZOLE
     Indication: GASTROOESOPHAGEAL REFLUX DISEASE
     Dosage: GENERIC40.0MG UNKNOWN
     Route: 065
     Dates: start: 2009
  37. PREVACID 24 HR [Suspect]
     Active Substance: LANSOPRAZOLE
     Indication: GASTROOESOPHAGEAL REFLUX DISEASE
     Route: 065
     Dates: start: 2005
  38. ZEGERID OTC [Suspect]
     Active Substance: OMEPRAZOLE\SODIUM BICARBONATE
     Indication: GASTROOESOPHAGEAL REFLUX DISEASE
     Route: 065
  39. ESTRADIOL. [Concomitant]
     Active Substance: ESTRADIOL
     Indication: MENOPAUSE
     Dates: start: 2004
  40. TAGAMET [Concomitant]
     Active Substance: CIMETIDINE
  41. LAMICTAL [Concomitant]
     Active Substance: LAMOTRIGINE
     Dates: start: 20041102
  42. NEXIUM [Suspect]
     Active Substance: ESOMEPRAZOLE MAGNESIUM
     Indication: GASTROOESOPHAGEAL REFLUX DISEASE
     Route: 048
     Dates: start: 20170227
  43. PREVACID [Suspect]
     Active Substance: LANSOPRAZOLE
     Indication: GASTROOESOPHAGEAL REFLUX DISEASE
     Route: 065
     Dates: start: 2005
  44. AZITHROMYCIN ANHYDROUS. [Concomitant]
     Active Substance: AZITHROMYCIN ANHYDROUS
     Indication: NASOPHARYNGITIS
     Dates: start: 201802
  45. VITAMIN B12 [Concomitant]
     Active Substance: CYANOCOBALAMIN
     Indication: ASTHENIA
  46. ADVIL [Concomitant]
     Active Substance: IBUPROFEN
     Indication: PAIN
  47. TUMS [Concomitant]
     Active Substance: CALCIUM CARBONATE
  48. AMBIEN [Concomitant]
     Active Substance: ZOLPIDEM TARTRATE
     Dates: start: 20140403
  49. ESTROPIPATE. [Concomitant]
     Active Substance: ESTROPIPATE
     Dates: start: 20131227
  50. HYDROCODONE/ACETAMINOPHEN [Concomitant]
     Active Substance: ACETAMINOPHEN\HYDROCODONE
  51. ONDANSETRON [Concomitant]
     Active Substance: ONDANSETRON
  52. ZOFRAN [Concomitant]
     Active Substance: ONDANSETRON HYDROCHLORIDE
  53. ZOLOFT [Concomitant]
     Active Substance: SERTRALINE HYDROCHLORIDE
  54. NORPRIMIN [Concomitant]
  55. OMEPRAZOLE. [Suspect]
     Active Substance: OMEPRAZOLE
     Indication: GASTROOESOPHAGEAL REFLUX DISEASE
     Dosage: 20 MG UNKNOWN
     Route: 065
     Dates: start: 20090512
  56. OMEPRAZOLE. [Suspect]
     Active Substance: OMEPRAZOLE
     Indication: GASTROOESOPHAGEAL REFLUX DISEASE
     Dosage: GENERIC20.0MG UNKNOWN
     Route: 065
  57. LEVOTHYROXINE. [Concomitant]
     Active Substance: LEVOTHYROXINE
     Indication: THYROID DISORDER
     Dates: start: 2015
  58. BUSPAR [Concomitant]
     Active Substance: BUSPIRONE HYDROCHLORIDE
     Indication: ANXIETY
     Dates: start: 2015
  59. DIFLUCAN [Concomitant]
     Active Substance: FLUCONAZOLE
     Dates: start: 20051210
  60. XANAX [Concomitant]
     Active Substance: ALPRAZOLAM
  61. SERTRALINE [Concomitant]
     Active Substance: SERTRALINE HYDROCHLORIDE
  62. POTASSIUM CHLORIDE. [Concomitant]
     Active Substance: POTASSIUM CHLORIDE
  63. NEXIUM [Suspect]
     Active Substance: ESOMEPRAZOLE MAGNESIUM
     Indication: GASTROOESOPHAGEAL REFLUX DISEASE
     Route: 048
     Dates: start: 2005, end: 2016
  64. DEXILANT [Suspect]
     Active Substance: DEXLANSOPRAZOLE
     Indication: GASTROOESOPHAGEAL REFLUX DISEASE
     Route: 065
     Dates: start: 2009, end: 2011
  65. DEXILANT [Suspect]
     Active Substance: DEXLANSOPRAZOLE
     Indication: GASTROOESOPHAGEAL REFLUX DISEASE
     Route: 065
     Dates: start: 2015, end: 2016
  66. BELSOMRA [Concomitant]
     Active Substance: SUVOREXANT
     Indication: SLEEP DISORDER
     Dates: start: 2018
  67. CETFRIAXONE [Concomitant]
     Indication: KIDNEY INFECTION
  68. PEPTO?BISMOL [Concomitant]
     Active Substance: BISMUTH SUBSALICYLATE
  69. LISINOPRIL. [Concomitant]
     Active Substance: LISINOPRIL
     Dates: start: 20140403
  70. DIAZEPAM. [Concomitant]
     Active Substance: DIAZEPAM
  71. TRIMETHOPRIM. [Concomitant]
     Active Substance: TRIMETHOPRIM
  72. PROPRANOLOL [Concomitant]
     Active Substance: PROPRANOLOL HYDROCHLORIDE
  73. DEXILANT [Suspect]
     Active Substance: DEXLANSOPRAZOLE
     Indication: GASTROOESOPHAGEAL REFLUX DISEASE
     Route: 065
     Dates: start: 201207
  74. NEURONTIN [Concomitant]
     Active Substance: GABAPENTIN
     Indication: PAIN
     Dates: start: 2016, end: 2018
  75. TRAMADOL. [Concomitant]
     Active Substance: TRAMADOL
     Indication: PAIN
     Dates: start: 201802
  76. HCTZ [Concomitant]
     Active Substance: HYDROCHLOROTHIAZIDE
     Indication: HYPERTENSION
  77. FUROZEMIDE [Concomitant]
     Indication: HYPERTENSION
  78. DICLOFENAC SODIUM. [Concomitant]
     Active Substance: DICLOFENAC SODIUM
     Dates: start: 20131227
  79. CYMBALTA [Concomitant]
     Active Substance: DULOXETINE HYDROCHLORIDE
     Dates: start: 20041102
  80. KLONOPIN [Concomitant]
     Active Substance: CLONAZEPAM
  81. CARAFATE [Concomitant]
     Active Substance: SUCRALFATE
  82. METHOCARBAMOL. [Concomitant]
     Active Substance: METHOCARBAMOL

REACTIONS (8)
  - Cystitis [Not Recovered/Not Resolved]
  - Renal failure [Unknown]
  - Urinary tract infection [Unknown]
  - Acute kidney injury [Not Recovered/Not Resolved]
  - Renal impairment [Unknown]
  - Kidney infection [Not Recovered/Not Resolved]
  - Muscle spasms [Unknown]
  - Renal pain [Unknown]

NARRATIVE: CASE EVENT DATE: 200902
